FAERS Safety Report 13476549 (Version 4)
Quarter: 2018Q3

REPORT INFORMATION
  Report Type: Report from Study
  Country: BR (occurrence: BR)
  Receive Date: 20170425
  Receipt Date: 20180829
  Transmission Date: 20181010
  Serious: Yes (Other)
  Sender: FDA-Public Use
  Company Number: BR-PFIZER INC-2017174572

PATIENT
  Age: 36 Year
  Sex: Female
  Weight: 68 kg

DRUGS (2)
  1. IBRANCE [Suspect]
     Active Substance: PALBOCICLIB
     Indication: BREAST CANCER
     Dosage: 125 MG, 1X/DAY
     Route: 048
     Dates: start: 20170322
  2. FASLODEX [Concomitant]
     Active Substance: FULVESTRANT
     Indication: BREAST CANCER
     Dosage: 500 MG, CYCLIC (EVERY 28 DAYS)
     Route: 030
     Dates: start: 20160711

REACTIONS (1)
  - Bone marrow toxicity [Recovering/Resolving]

NARRATIVE: CASE EVENT DATE: 20170417
